FAERS Safety Report 11399272 (Version 1)
Quarter: 2015Q3

REPORT INFORMATION
  Report Type: Spontaneous
  Country: US (occurrence: US)
  Receive Date: 20150820
  Receipt Date: 20150820
  Transmission Date: 20151125
  Serious: No
  Sender: FDA-Public Use
  Company Number: US-ASTRAZENECA-2015SE76696

PATIENT
  Age: 52 Year
  Sex: Female
  Weight: 54.4 kg

DRUGS (30)
  1. MEPERIDINE [Suspect]
     Active Substance: MEPERIDINE
     Route: 065
  2. RELPAX [Suspect]
     Active Substance: ELETRIPTAN HYDROBROMIDE
     Route: 065
  3. MOTRIN [Concomitant]
     Active Substance: IBUPROFEN
     Route: 048
  4. LACTAID [Concomitant]
     Active Substance: LACTASE
     Dosage: 3000 UNIT  TAKE 1 TABLET BY MOUTH AS NEEDED.
     Route: 048
  5. ATIVAN [Concomitant]
     Active Substance: LORAZEPAM
     Route: 048
  6. NAPROSYN [Concomitant]
     Active Substance: NAPROXEN
     Route: 048
  7. NEURONTIN [Suspect]
     Active Substance: GABAPENTIN
     Dosage: ?
     Route: 048
  8. NEURONTIN [Suspect]
     Active Substance: GABAPENTIN
     Dosage: 300 MG 1 TAB IN AM, 3 TABS NIGHT
     Route: 048
  9. COENZYME [Concomitant]
     Active Substance: UBIDECARENONE
     Dosage: 1 CAPSULE BY COENZYME Q10 400 MG CAPSULE MOUTH DAILY.
     Route: 048
  10. IMITREX [Concomitant]
     Active Substance: SUMATRIPTAN\SUMATRIPTAN SUCCINATE
     Dosage: TAKE 1 TABLET BY MOUTH ONCE. MAY REPEAT ONE TIME AFTER 2 HOURS AS NEEDED. MAX OF 2 TABLETS IN 24 HOU
     Route: 048
  11. B COMPLEX-BIOTIN-FA [Concomitant]
     Dosage: MONTHLY
     Route: 048
  12. IPRATROPIUM-ALBUTEROL [Concomitant]
     Active Substance: ALBUTEROL\IPRATROPIUM
     Route: 055
  13. NEXIUM [Suspect]
     Active Substance: ESOMEPRAZOLE MAGNESIUM
     Route: 048
  14. PRENATAL VITAMINS [Concomitant]
     Active Substance: VITAMINS
     Route: 048
  15. TOPAMAX [Concomitant]
     Active Substance: TOPIRAMATE
     Dosage: TAKE 2 TABLETS BY MOUTH NIGHTLY.
     Route: 048
  16. CALCIUM/MAGNESIUM/ZINC [Concomitant]
     Dosage: 1000-400-15 MG TAKE 1 TABLET BY MOUTH DAILY.
  17. VAGIFEM VAG [Concomitant]
     Dosage: 10 MCG 1 APPLICATORFUL VAR:IINALLY 2 TIMES WEEKLY.
  18. THERATRUM COMPLETE 50 PLUS [Concomitant]
     Route: 048
  19. PREMARIN [Suspect]
     Active Substance: ESTROGENS, CONJUGATED
     Route: 048
  20. DIFLUCAN [Suspect]
     Active Substance: FLUCONAZOLE
     Route: 065
  21. LACTOBACILLUS [Concomitant]
     Active Substance: LACTOBACILLUS ACIDOPHILUS
     Dosage: 1 TABLET BY MOUTH DAILY.
  22. LINACLOTIDE [Concomitant]
     Active Substance: LINACLOTIDE
     Dosage: TAKE 1 CAPSULE BY MOUTH ONE TIME DAILY.
     Route: 048
  23. FLORASTOR [Concomitant]
     Active Substance: SACCHAROMYCES CEREVISIAE
     Dosage: 250 MG BY MOUTH 2 TIMES DAILY.
  24. BACTROBAN [Concomitant]
     Active Substance: MUPIROCIN\MUPIROCIN CALCIUM
  25. ZANTAC [Concomitant]
     Active Substance: RANITIDINE HYDROCHLORIDE
     Route: 048
  26. MEPERIDINE [Suspect]
     Active Substance: MEPERIDINE
     Dosage: DEMEROL
     Route: 065
  27. KETEK [Suspect]
     Active Substance: TELITHROMYCIN
     Route: 065
  28. BIOTIN [Concomitant]
     Active Substance: BIOTIN
     Dosage: 10,000 MCR BY MOUTH DAILY.
  29. NITROFURANTOIN (MACROCRYSTALS) [Concomitant]
     Active Substance: NITROFURANTOIN
     Dosage: 50 MG BY MOUTH AS NEEDED
  30. LEXAPRO [Concomitant]
     Active Substance: ESCITALOPRAM OXALATE
     Route: 048

REACTIONS (5)
  - Change of bowel habit [Unknown]
  - Abdominal pain [Unknown]
  - Anal haemorrhage [Unknown]
  - Constipation [Unknown]
  - Drug hypersensitivity [Unknown]
